FAERS Safety Report 7962528-7 (Version None)
Quarter: 2011Q4

REPORT INFORMATION
  Report Type: 
  Country: None (occurrence: None)
  Receive Date: 20111207
  Receipt Date: 20111129
  Transmission Date: 20120403
  Serious: Yes (Hospitalization)
  Sender: FDA-Public Use
  Company Number: JP-GLAXOSMITHKLINE-B0701309A

PATIENT
  Sex: Male
  Weight: 48 kg

DRUGS (14)
  1. THIATON [Concomitant]
     Dosage: 10MG PER DAY
     Route: 048
     Dates: start: 20110114, end: 20110118
  2. PROMACTA [Suspect]
     Indication: IDIOPATHIC THROMBOCYTOPENIC PURPURA
     Dosage: 12.5MG PER DAY
     Route: 048
     Dates: start: 20101217, end: 20110121
  3. RABEPRAZOLE SODIUM [Concomitant]
     Dosage: 10MG PER DAY
     Route: 048
     Dates: start: 20101222, end: 20110217
  4. ZOLPIDEM [Concomitant]
     Dosage: 5MG PER DAY
     Route: 048
     Dates: start: 20101222, end: 20110217
  5. UROCALUN [Concomitant]
     Dosage: 225MG PER DAY
     Route: 048
     Dates: start: 20110113, end: 20110118
  6. ONEALFA [Concomitant]
     Dosage: .25MG PER DAY
     Route: 048
     Dates: start: 20110114, end: 20110120
  7. GABAPENTIN [Concomitant]
     Dosage: 200MG PER DAY
     Route: 048
     Dates: start: 20110118, end: 20110124
  8. PROMACTA [Suspect]
     Dosage: 25MG PER DAY
     Route: 048
     Dates: start: 20110122, end: 20110217
  9. ALENDRONATE SODIUM [Concomitant]
     Dosage: 35MG PER DAY
     Route: 048
     Dates: start: 20110115, end: 20110115
  10. VFEND [Concomitant]
     Dosage: 100MG PER DAY
     Route: 048
     Dates: start: 20101222, end: 20110217
  11. TRAMADOL HYDROCHLORIDE [Concomitant]
     Dosage: 25MG PER DAY
     Route: 048
     Dates: start: 20110118, end: 20110123
  12. MUCOSTA [Concomitant]
     Dosage: 100MG PER DAY
     Route: 048
     Dates: start: 20101222, end: 20110217
  13. IMURAN [Concomitant]
     Indication: IDIOPATHIC THROMBOCYTOPENIC PURPURA
     Dosage: 50MG PER DAY
     Route: 048
     Dates: start: 20101222, end: 20110217
  14. PREDNISOLONE [Concomitant]
     Indication: IDIOPATHIC THROMBOCYTOPENIC PURPURA
     Dosage: 20MG PER DAY
     Route: 048
     Dates: start: 20101222, end: 20110204

REACTIONS (1)
  - WHITE BLOOD CELL COUNT DECREASED [None]
